FAERS Safety Report 7928288-0 (Version None)
Quarter: 2011Q4

REPORT INFORMATION
  Report Type: 
  Country: None (occurrence: None)
  Receive Date: 20111118
  Receipt Date: 20111111
  Transmission Date: 20120403
  Serious: Yes (Hospitalization)
  Sender: FDA-Public Use
  Company Number: KR-ELI_LILLY_AND_COMPANY-KR201111004890

PATIENT
  Age: 65 Year
  Sex: Female
  Weight: 70 kg

DRUGS (3)
  1. HUMALOG MIX 75/25 [Suspect]
     Indication: DIABETES MELLITUS
     Dosage: 36 U, EACH MORNING
     Route: 065
     Dates: start: 20110908
  2. HUMALOG MIX 75/25 [Suspect]
     Dosage: 14 U, EACH EVENING
     Route: 065
     Dates: start: 20110908
  3. ANALGESICS [Concomitant]
     Dosage: UNK
     Dates: end: 20111001

REACTIONS (1)
  - INTERVERTEBRAL DISC PROTRUSION [None]
